FAERS Safety Report 23182520 (Version 1)
Quarter: 2023Q4

REPORT INFORMATION
  Report Type: Spontaneous
  Country: US (occurrence: US)
  Receive Date: 20231114
  Receipt Date: 20231114
  Transmission Date: 20240109
  Serious: No
  Sender: FDA-Public Use
  Company Number: US-OptiNose US, Inc-2022OPT000187

PATIENT
  Age: 18 Year
  Sex: Male

DRUGS (4)
  1. XHANCE [Suspect]
     Active Substance: FLUTICASONE PROPIONATE
     Indication: Nasal turbinate hypertrophy
     Route: 045
     Dates: start: 20221027
  2. XHANCE [Suspect]
     Active Substance: FLUTICASONE PROPIONATE
     Indication: Sinusitis
  3. XHANCE [Suspect]
     Active Substance: FLUTICASONE PROPIONATE
     Indication: Nasal septum deviation
  4. OMNICEF [Suspect]
     Active Substance: CEFDINIR
     Indication: Sinusitis
     Route: 065
     Dates: end: 20221108

REACTIONS (5)
  - Pruritus [Unknown]
  - Joint swelling [Unknown]
  - Rash [Unknown]
  - Off label use [Unknown]
  - Product use in unapproved indication [Unknown]

NARRATIVE: CASE EVENT DATE: 20221104
